FAERS Safety Report 17552889 (Version 3)
Quarter: 2022Q1

REPORT INFORMATION
  Report Type: Report from Study
  Country: PA (occurrence: PA)
  Receive Date: 20200317
  Receipt Date: 20220126
  Transmission Date: 20220424
  Serious: Yes (Hospitalization)
  Sender: FDA-Public Use
  Company Number: None

PATIENT
  Age: 43 Year
  Sex: Male

DRUGS (2)
  1. SECUKINUMAB [Suspect]
     Active Substance: SECUKINUMAB
     Indication: Psoriasis
     Dosage: 300 MG, QMO (BENEATH THE SKIN, USUALLY VIA INJECTION)
     Route: 058
     Dates: start: 20191015
  2. SECUKINUMAB [Suspect]
     Active Substance: SECUKINUMAB
     Indication: Multiple sclerosis

REACTIONS (9)
  - Vomiting [Not Recovered/Not Resolved]
  - Oxygen saturation decreased [Recovering/Resolving]
  - Dehydration [Recovering/Resolving]
  - Coronavirus infection [Recovering/Resolving]
  - Hypersensitivity [Recovering/Resolving]
  - Diarrhoea [Recovering/Resolving]
  - Immune system disorder [Recovering/Resolving]
  - Malaise [Not Recovered/Not Resolved]
  - Product use in unapproved indication [Unknown]

NARRATIVE: CASE EVENT DATE: 20200301
